FAERS Safety Report 10348830 (Version 2)
Quarter: 2014Q3

REPORT INFORMATION
  Report Type: Spontaneous
  Country: FR (occurrence: None)
  Receive Date: 20140725
  Receipt Date: 20140801
  Transmission Date: 20150326
  Serious: Yes (Hospitalization, Other)
  Sender: FDA-Public Use
  Company Number: AUR-APL-2014-07889

PATIENT
  Age: 52 Year
  Sex: Female

DRUGS (6)
  1. ENDOXAN [Suspect]
     Active Substance: CYCLOPHOSPHAMIDE
     Indication: BREAST CANCER
     Dosage: 1200 MG, CYCLICAL, UNKNOWN
     Dates: start: 20140128
  2. FARMORUBICINE [Suspect]
     Active Substance: EPIRUBICIN HYDROCHLORIDE
     Indication: BREAST CANCER
     Dosage: 120 MG, CYCLICAL, UNKNOWN
     Dates: start: 20140128
  3. DOCETAXEL (DOCETAXEL) [Suspect]
     Active Substance: DOCETAXEL
     Indication: BREAST CANCER
     Dosage: 160 MG, CYCLICAL, INTRAVENOUS
     Route: 042
     Dates: start: 20140418, end: 20140418
  4. METHYLPREDNISOLONE [Suspect]
     Active Substance: METHYLPREDNISOLONE
     Indication: PREMEDICATION
     Dosage: 80MG, SINGLE, INTRAVENOUS
     Route: 042
     Dates: start: 20140418, end: 20140418
  5. ONDANSETRON [Suspect]
     Active Substance: ONDANSETRON
     Indication: PREMEDICATION
     Route: 042
     Dates: start: 20140418, end: 20140418
  6. HERCEPTIN [Suspect]
     Active Substance: TRASTUZUMAB
     Indication: BREAST CANCER
     Dosage: 385 MG, CYCLICAL, INTRAVENOUS
     Route: 042
     Dates: start: 20140418, end: 20140418

REACTIONS (8)
  - Muscle spasms [None]
  - Thyroid neoplasm [None]
  - Dyspnoea exertional [None]
  - Dyspnoea [None]
  - Vocal cord paralysis [None]
  - Neutropenia [None]
  - Mucosal inflammation [None]
  - Fungal infection [None]

NARRATIVE: CASE EVENT DATE: 20140420
